FAERS Safety Report 23259722 (Version 1)
Quarter: 2023Q4

REPORT INFORMATION
  Report Type: Spontaneous
  Country: CN (occurrence: CN)
  Receive Date: 20231204
  Receipt Date: 20231204
  Transmission Date: 20240110
  Serious: Yes (Hospitalization, Other)
  Sender: FDA-Public Use
  Company Number: CN-OTSUKA-2023_031242

PATIENT
  Age: 59 Year
  Sex: Female
  Weight: 64 kg

DRUGS (4)
  1. TOLVAPTAN [Suspect]
     Active Substance: TOLVAPTAN
     Indication: Atrial flutter
     Dosage: 7.5 MG, QD
     Route: 048
     Dates: start: 20230904, end: 20231104
  2. WARFARIN SODIUM [Suspect]
     Active Substance: WARFARIN SODIUM
     Indication: Atrial flutter
     Dosage: 7.5 MG, QD
     Route: 048
     Dates: start: 20230902, end: 20231104
  3. AMIODARONE HYDROCHLORIDE [Suspect]
     Active Substance: AMIODARONE HYDROCHLORIDE
     Indication: Atrial flutter
     Dosage: 200 MG, QD
     Route: 048
     Dates: start: 20230902, end: 20231104
  4. ESOMEPRAZOLE [Suspect]
     Active Substance: ESOMEPRAZOLE
     Indication: Stress ulcer
     Dosage: 10 MG, QD (ENTERIC-COATED)
     Route: 048
     Dates: start: 20230828, end: 20231104

REACTIONS (2)
  - Liver injury [Recovering/Resolving]
  - Product use in unapproved indication [Unknown]

NARRATIVE: CASE EVENT DATE: 20230904
